FAERS Safety Report 10044681 (Version 6)
Quarter: 2014Q2

REPORT INFORMATION
  Report Type: Report from Study
  Country: DE (occurrence: DE)
  Receive Date: 20140328
  Receipt Date: 20140612
  Transmission Date: 20141212
  Serious: Yes (Hospitalization)
  Sender: FDA-Public Use
  Company Number: PHHO2014DE004436

PATIENT
  Sex: 0

DRUGS (12)
  1. AFINITOR [Suspect]
     Indication: NEUROENDOCRINE TUMOUR
     Dosage: 10 MG, QD
     Route: 048
     Dates: start: 20120904, end: 20130916
  2. AFINITOR [Suspect]
     Dosage: 5 MG, QD
     Route: 048
     Dates: start: 20130917
  3. SOM230 [Suspect]
     Indication: NEUROENDOCRINE TUMOUR
     Dosage: 60 MG, EVERY 4WEEKS
     Route: 030
     Dates: start: 20121128
  4. METFORMIN [Concomitant]
     Indication: HYPERGLYCAEMIA
     Dosage: 500 MG, BID
     Dates: start: 20130809
  5. SIMVASTATIN [Concomitant]
     Indication: HYPERLIPIDAEMIA
     Dosage: 20 MG, QD
     Dates: start: 20130218
  6. FLUVASTATIN [Concomitant]
     Indication: HYPERLIPIDAEMIA
     Dosage: 20 MG, QD
     Dates: start: 20140324, end: 20140327
  7. METOPROLOL [Concomitant]
     Indication: HYPERTENSION
     Dosage: 95 MG, BID
     Dates: start: 20130417
  8. TORASEMID [Concomitant]
     Indication: HYPERTENSION
     Dosage: 10 MG, QD
     Dates: start: 201305
  9. ASS [Concomitant]
     Indication: HYPERTENSION
     Dosage: 100 MG, QD
     Dates: start: 201305
  10. MOXONIDIN [Concomitant]
     Indication: HYPERTENSION
     Dosage: 0.2 MG, (4XDAILY)
     Dates: start: 20140304
  11. MAGNESIUM [Concomitant]
     Indication: PROPHYLAXIS
     Dosage: 400 MG, QD
     Dates: start: 20131120
  12. VALSARTAN [Concomitant]
     Indication: HYPERTENSION
     Dosage: 320/ 12.5 MG, QD
     Dates: start: 201305

REACTIONS (1)
  - Weight decreased [Recovered/Resolved]
